FAERS Safety Report 9888475 (Version 1)
Quarter: 2014Q1

REPORT INFORMATION
  Report Type: Spontaneous
  Country: DK (occurrence: GB)
  Receive Date: 20140211
  Receipt Date: 20140211
  Transmission Date: 20141002
  Serious: Yes (Death)
  Sender: FDA-Public Use
  Company Number: GB-FRI-1000054057

PATIENT
  Age: 24 Year
  Sex: Male

DRUGS (1)
  1. CITALOPRAM [Suspect]
     Indication: DEPRESSED MOOD
     Route: 048

REACTIONS (1)
  - Completed suicide [Fatal]
